FAERS Safety Report 16706209 (Version 1)
Quarter: 2019Q3

REPORT INFORMATION
  Report Type: Spontaneous
  Country: US (occurrence: US)
  Receive Date: 20190628
  Receipt Date: 20190628
  Transmission Date: 20191004
  Serious: No
  Sender: FDA-Public Use
  Company Number: None

PATIENT
  Age: 89 Year
  Sex: Female
  Weight: 45 kg

DRUGS (1)
  1. ONDANSETRON 4MG IV [Suspect]
     Active Substance: ONDANSETRON
     Indication: PROPHYLAXIS OF NAUSEA AND VOMITING
     Dosage: 4MG IV X/ DOSE
     Route: 042

REACTIONS (3)
  - Muscle rigidity [None]
  - Tremor [None]
  - Serotonin syndrome [None]

NARRATIVE: CASE EVENT DATE: 20190613
